FAERS Safety Report 4496319-9 (Version None)
Quarter: 2004Q3

REPORT INFORMATION
  Report Type: 
  Country: None (occurrence: None)
  Receive Date: 20040921
  Receipt Date: 20040317
  Transmission Date: 20050211
  Serious: Yes (Hospitalization)
  Sender: FDA-Public Use
  Company Number: 163-20785-04030490

PATIENT
  Age: 39 Year
  Sex: Male

DRUGS (7)
  1. THALOMID [Suspect]
     Indication: MULTIPLE MYELOMA
     Dosage: 400 MG, DAILY, ORAL
     Route: 048
     Dates: start: 19990806, end: 19991125
  2. DEXAMETHASONE [Suspect]
     Indication: MULTIPLE MYELOMA
     Dosage: 40 MG, ORAL
     Route: 048
     Dates: start: 19991119, end: 19991122
  3. CISPLATIN [Suspect]
     Indication: MULTIPLE MYELOMA
     Dosage: 7.5 MG/M2, INTRAVENOUS
     Route: 042
     Dates: start: 19991119, end: 19991122
  4. ADRIAMYCIN PFS [Suspect]
     Indication: MULTIPLE MYELOMA
     Dosage: 7.5 MG/M2, INTRAVENOUS
     Route: 042
     Dates: start: 19991119, end: 19991122
  5. CYCLOPHOSPHAMIDE [Suspect]
     Indication: MULTIPLE MYELOMA
     Dosage: 300 MG/M2, INTRAVENOUS
     Route: 042
     Dates: start: 19991119, end: 19991122
  6. ETOPOSIDE [Suspect]
     Indication: MULTIPLE MYELOMA
     Dosage: 30 MG/M2, INTRAVENOUS
     Route: 042
     Dates: start: 19991119, end: 19991122
  7. BIAXIN [Concomitant]

REACTIONS (22)
  - ARTHRALGIA [None]
  - BACK PAIN [None]
  - CHEMICAL CYSTITIS [None]
  - CLOSTRIDIUM COLITIS [None]
  - DEEP VEIN THROMBOSIS [None]
  - DIARRHOEA [None]
  - DISEASE PROGRESSION [None]
  - DYSPHAGIA [None]
  - FACIAL PAIN [None]
  - HYPOAESTHESIA [None]
  - MUCOSAL INFLAMMATION [None]
  - NEUROPATHY [None]
  - NEUTROPENIA [None]
  - OEDEMA PERIPHERAL [None]
  - PAIN [None]
  - PARAESTHESIA [None]
  - PLASMACYTOMA [None]
  - PLATELET COUNT DECREASED [None]
  - PYREXIA [None]
  - SINUSITIS [None]
  - STAPHYLOCOCCAL INFECTION [None]
  - SWELLING FACE [None]
